FAERS Safety Report 23994178 (Version 1)
Quarter: 2024Q2

REPORT INFORMATION
  Report Type: Spontaneous
  Country: NO (occurrence: NO)
  Receive Date: 20240620
  Receipt Date: 20240620
  Transmission Date: 20240715
  Serious: Yes (Other)
  Sender: FDA-Public Use
  Company Number: NO-MYLANLABS-2024M1054851

PATIENT
  Sex: Female

DRUGS (2)
  1. NEURONTIN [Suspect]
     Active Substance: GABAPENTIN
     Indication: Product used for unknown indication
     Dosage: 300 MILLIGRAM (DAY 1)
     Route: 065
  2. NEURONTIN [Suspect]
     Active Substance: GABAPENTIN
     Dosage: 600 MILLIGRAM (DAY 2)
     Route: 065

REACTIONS (1)
  - Pancreatitis [Unknown]
